FAERS Safety Report 8708421 (Version 3)
Quarter: 2012Q4

REPORT INFORMATION
  Report Type: Report from Study
  Country: FR (occurrence: FR)
  Receive Date: 20120806
  Receipt Date: 20121221
  Transmission Date: 20130627
  Serious: Yes (Other)
  Sender: FDA-Public Use
  Company Number: FR-PFIZER INC-2012187617

PATIENT
  Age: 63 Year
  Sex: Female

DRUGS (3)
  1. CRIZOTINIB [Suspect]
     Indication: BRONCHIAL CARCINOMA
     Dosage: 250 mg, 2x/day
     Dates: start: 20120601, end: 20120730
  2. ARIXTRA [Concomitant]
     Indication: THROMBOSIS
     Dosage: 5 UNK, 1x/day
     Route: 058
     Dates: start: 2011
  3. MEDROL [Concomitant]
     Indication: CEREBRAL DISORDER
     Dosage: 16 UNK, 1x/day
     Route: 048
     Dates: start: 2011

REACTIONS (2)
  - Hepatitis [Recovered/Resolved]
  - Blood bilirubin abnormal [Recovered/Resolved]
